FAERS Safety Report 5847489-9 (Version None)
Quarter: 2008Q3

REPORT INFORMATION
  Report Type: 
  Country: None (occurrence: None)
  Receive Date: 20080814
  Receipt Date: 20080801
  Transmission Date: 20090109
  Serious: No
  Sender: FDA-Public Use
  Company Number: US024274

PATIENT

DRUGS (1)
  1. FENTORA [Suspect]
     Indication: CYSTITIS INTERSTITIAL
     Dosage: UNK BUCCAL
     Route: 002

REACTIONS (1)
  - DRUG PRESCRIBING ERROR [None]
